FAERS Safety Report 7268649-9 (Version None)
Quarter: 2010Q4

REPORT INFORMATION
  Report Type: 
  Country: None (occurrence: None)
  Receive Date: 20101206
  Receipt Date: 20100927
  Transmission Date: 20110411
  Serious: No
  Sender: FDA-Public Use
  Company Number: 2010SP051659

PATIENT
  Age: 54 Year
  Sex: Female

DRUGS (1)
  1. SAPHRIS [Suspect]
     Indication: PRODUCT USED FOR UNKNOWN INDICATION
     Dosage: ;SL
     Route: 060
     Dates: start: 20100701

REACTIONS (4)
  - DRUG ADMINISTRATION ERROR [None]
  - INCORRECT ROUTE OF DRUG ADMINISTRATION [None]
  - RETCHING [None]
  - VOMITING [None]
